FAERS Safety Report 7906864-9 (Version None)
Quarter: 2011Q4

REPORT INFORMATION
  Report Type: 
  Country: None (occurrence: None)
  Receive Date: 20111110
  Receipt Date: 20111031
  Transmission Date: 20120403
  Serious: Yes (Hospitalization)
  Sender: FDA-Public Use
  Company Number: US-BAXTER-2011BH033389

PATIENT
  Age: 25 Year
  Sex: Male

DRUGS (2)
  1. COUMADIN [Suspect]
     Indication: PERIPHERAL ARTERIAL OCCLUSIVE DISEASE
  2. DIANEAL [Suspect]
     Indication: PERITONEAL DIALYSIS
     Route: 033

REACTIONS (2)
  - EPISTAXIS [None]
  - PERIPHERAL ARTERIAL OCCLUSIVE DISEASE [None]
